FAERS Safety Report 8779321 (Version 2)
Quarter: 2012Q4

REPORT INFORMATION
  Report Type: 
  Country: US (occurrence: US)
  Receive Date: 20120911
  Receipt Date: 20121003
  Transmission Date: 20130627
  Serious: Yes (Hospitalization)
  Sender: FDA-Public Use
  Company Number: US-ELI_LILLY_AND_COMPANY-US201209000105

PATIENT
  Age: 71 Year
  Sex: Female

DRUGS (6)
  1. ALIMTA [Suspect]
     Indication: LUNG ADENOCARCINOMA STAGE IV
     Dosage: 920 mg/m2, every 3 weeks
     Route: 065
     Dates: start: 20120719, end: 20120719
  2. ALIMTA [Suspect]
     Dosage: 705 mg, every 3 weeks
     Route: 065
     Dates: start: 20120809, end: 20120809
  3. CISPLATIN [Concomitant]
     Indication: LUNG ADENOCARCINOMA STAGE IV
     Dosage: UNK
     Dates: start: 20120719, end: 20120809
  4. VITAMIN B12 [Concomitant]
     Indication: PROPHYLAXIS
     Dosage: 1 mg,monthly
     Route: 058
     Dates: start: 20120712
  5. FOLIC ACID [Concomitant]
     Indication: PROPHYLAXIS
     Dosage: 400 UNK, daily
     Route: 048
     Dates: start: 20120712
  6. CORTICOSTEROIDS [Concomitant]
     Indication: PROPHYLAXIS
     Dosage: 4 mg, day before and day of each cycle

REACTIONS (5)
  - Epistaxis [Recovered/Resolved]
  - Asthenia [Unknown]
  - Thrombocytopenia [Recovered/Resolved]
  - Haemoglobin abnormal [Recovered/Resolved]
  - Leukopenia [Recovered/Resolved]
